FAERS Safety Report 6316862-7 (Version None)
Quarter: 2009Q3

REPORT INFORMATION
  Report Type: 
  Country: None (occurrence: None)
  Receive Date: 20090820
  Receipt Date: 20090812
  Transmission Date: 20100115
  Serious: Yes (Death, Hospitalization)
  Sender: FDA-Public Use
  Company Number: US-ROCHE-650343

PATIENT
  Sex: Male
  Weight: 72.6 kg

DRUGS (1)
  1. CAPECITABINE [Suspect]
     Indication: COLORECTAL CANCER
     Dosage: 14 DAYS ON AND 7 DAYS OFF
     Route: 048
     Dates: start: 20090403, end: 20090702

REACTIONS (3)
  - COLOSTOMY INFECTION [None]
  - DEATH [None]
  - MALIGNANT NEOPLASM PROGRESSION [None]
